FAERS Safety Report 10151324 (Version 1)
Quarter: 2014Q2

REPORT INFORMATION
  Report Type: Spontaneous
  Country: US (occurrence: US)
  Receive Date: 20140502
  Receipt Date: 20140502
  Transmission Date: 20141212
  Serious: No
  Sender: FDA-Public Use
  Company Number: US-ASTRAZENECA-2013SE67475

PATIENT
  Sex: Female

DRUGS (1)
  1. PRILOSEC OTC [Suspect]
     Indication: ERUCTATION
     Dosage: UNKNOWN DOSE FOR 3 DAYS
     Route: 048
     Dates: start: 20130831

REACTIONS (2)
  - Abdominal pain upper [Not Recovered/Not Resolved]
  - Off label use [Unknown]
